FAERS Safety Report 9703392 (Version 1)
Quarter: 2013Q4

REPORT INFORMATION
  Report Type: Spontaneous
  Country: ES (occurrence: ES)
  Receive Date: 20131122
  Receipt Date: 20131122
  Transmission Date: 20140711
  Serious: Yes (Other)
  Sender: FDA-Public Use
  Company Number: PHHY2013ES132876

PATIENT
  Age: 71 Year
  Sex: Male

DRUGS (5)
  1. ZOMETA [Suspect]
     Dosage: 4 MG, UNK
     Route: 042
     Dates: start: 20130928, end: 20130928
  2. REPAGLINIDE [Concomitant]
     Dosage: UNK UKN, UNK
  3. ENALAPRIL + HIDROCLOROTIAZIDA [Concomitant]
     Dosage: UNK UKN, UNK
  4. DECAPEPTYL//TRIPTORELIN ACETATE [Concomitant]
     Dosage: 22.5 MG, UNK
  5. WIBICAL [Concomitant]
     Dosage: 50 MG, UNK

REACTIONS (2)
  - Pain [Recovered/Resolved]
  - Eyelid oedema [Recovered/Resolved]
